FAERS Safety Report 5011960-2 (Version None)
Quarter: 2006Q2

REPORT INFORMATION
  Report Type: 
  Country: None (occurrence: None)
  Receive Date: 20060526
  Receipt Date: 20060518
  Transmission Date: 20061013
  Serious: Yes (Hospitalization)
  Sender: FDA-Public Use
  Company Number: US-KINGPHARMUSA00001-K200600653

PATIENT
  Age: 46 Year
  Sex: Male

DRUGS (6)
  1. ALTACE [Suspect]
     Indication: HYPERTENSION
     Dosage: 10 MG, QD
     Route: 048
  2. SIMVASTATIN [Suspect]
     Indication: HYPERCHOLESTEROLAEMIA
     Dosage: 40 MG, QD
     Route: 048
  3. CLOZAPINE [Suspect]
     Route: 048
     Dates: start: 19951031
  4. AMISULPRIDE [Concomitant]
     Indication: SCHIZOPHRENIA
     Dosage: 400 MG, UNK
     Dates: start: 20040831, end: 20060225
  5. ATENOLOL [Concomitant]
     Indication: HYPERTENSION
     Dosage: 100 MG, UNK
     Dates: start: 19951031, end: 20040809
  6. ACETYLSALICYLIC ACID SRT [Concomitant]
     Indication: PROPHYLAXIS
     Dosage: 75 MG, UNK

REACTIONS (8)
  - ABDOMINAL DISTENSION [None]
  - CIRCULATORY COLLAPSE [None]
  - DEHYDRATION [None]
  - FALL [None]
  - HYPOTENSION [None]
  - PANCREATITIS [None]
  - RENAL FAILURE [None]
  - VOMITING [None]
